FAERS Safety Report 4693616-9 (Version None)
Quarter: 2005Q2

REPORT INFORMATION
  Report Type: 
  Country: None (occurrence: None)
  Receive Date: 20050615
  Receipt Date: 20050601
  Transmission Date: 20051028
  Serious: Yes (Hospitalization, Other)
  Sender: FDA-Public Use
  Company Number: USA050699544

PATIENT
  Age: 73 Year
  Sex: Female

DRUGS (6)
  1. EVISTA [Suspect]
     Dosage: 60 MG/1 DAY
     Dates: start: 20020101
  2. DIGOXIN [Concomitant]
  3. ZOCOR [Concomitant]
  4. WATER PILLS [Concomitant]
  5. GLUCOPHAGE [Concomitant]
  6. GLYBURIDE [Concomitant]

REACTIONS (5)
  - CORONARY ARTERY SURGERY [None]
  - FATIGUE [None]
  - FLUID RETENTION [None]
  - HEART RATE INCREASED [None]
  - HEART VALVE REPLACEMENT [None]
